FAERS Safety Report 13213217 (Version 2)
Quarter: 2017Q1

REPORT INFORMATION
  Report Type: Spontaneous
  Country: FR (occurrence: FR)
  Receive Date: 20170210
  Receipt Date: 20170330
  Transmission Date: 20170428
  Serious: Yes (Hospitalization, Other)
  Sender: FDA-Public Use
  Company Number: FR-GILEAD-2017-0257048

PATIENT
  Age: 46 Year
  Sex: Female

DRUGS (9)
  1. HARVONI [Suspect]
     Active Substance: LEDIPASVIR\SOFOSBUVIR
     Indication: CHRONIC HEPATITIS C
     Dosage: 1 DF, QD
     Route: 048
     Dates: start: 20161108
  2. PANTOPRAZOLE [Concomitant]
     Active Substance: PANTOPRAZOLE SODIUM
  3. COLECALCIFEROL [Concomitant]
     Active Substance: CHOLECALCIFEROL
  4. HYDROCORTISONE. [Concomitant]
     Active Substance: HYDROCORTISONE
  5. FLUCORTAC [Concomitant]
     Active Substance: FLUDROCORTISONE ACETATE
  6. FOLINATE DE CALCIUM [Concomitant]
     Active Substance: LEUCOVORIN CALCIUM
  7. PROPANOLOL                         /00030001/ [Concomitant]
     Active Substance: PROPRANOLOL HYDROCHLORIDE
  8. PROFEMIGR [Concomitant]
     Active Substance: KETOPROFEN
  9. ALMOGRAN [Concomitant]
     Active Substance: ALMOTRIPTAN MALATE

REACTIONS (4)
  - Adrenal insufficiency [Unknown]
  - Migraine [Unknown]
  - Asthenia [Unknown]
  - Diarrhoea [Unknown]

NARRATIVE: CASE EVENT DATE: 201701
